FAERS Safety Report 6197439-3 (Version None)
Quarter: 2009Q2

REPORT INFORMATION
  Report Type: 
  Country: None (occurrence: None)
  Receive Date: 20090521
  Receipt Date: 20090515
  Transmission Date: 20091009
  Serious: No
  Sender: FDA-Public Use
  Company Number: US-B.I. PHARMACEUTICALS,INC./RIDGEFIELD-2009-BP-05236BP

PATIENT
  Sex: Male

DRUGS (9)
  1. SPIRIVA [Suspect]
     Indication: CHRONIC OBSTRUCTIVE PULMONARY DISEASE
     Dosage: 18MCG
     Route: 055
  2. SPIRIVA [Suspect]
     Indication: EMPHYSEMA
  3. GEMFIBROZIL [Concomitant]
  4. OMEPRAZOLE [Concomitant]
  5. FLUOXETINE HCL [Concomitant]
  6. METOPROLOL SUCCINATE [Concomitant]
  7. ARIPIPRAZOLE [Concomitant]
  8. OXAPROZIN TABLET DRL [Concomitant]
  9. VENTOLIN HFA [Concomitant]

REACTIONS (2)
  - SWOLLEN TONGUE [None]
  - TONGUE ULCERATION [None]
